FAERS Safety Report 4613637-1 (Version None)
Quarter: 2005Q1

REPORT INFORMATION
  Report Type: 
  Country: None (occurrence: None)
  Receive Date: 20050318
  Receipt Date: 20050318
  Transmission Date: 20050727
  Serious: Yes (Hospitalization)
  Sender: FDA-Public Use
  Company Number: None

PATIENT
  Sex: Female

DRUGS (5)
  1. AUGMENTIN '125' [Suspect]
     Indication: SYSTEMIC ANTIBACTERIAL THERAPY
     Dosage: PO    PRIOR TO ER VISIT
     Route: 048
  2. LEXAPRO [Concomitant]
  3. HYDROCHLOROTHIAZIDE [Concomitant]
  4. ACTIFED [Concomitant]
  5. VITAMIN [Concomitant]

REACTIONS (2)
  - HYPERSENSITIVITY [None]
  - NAUSEA [None]
